FAERS Safety Report 14186355 (Version 7)
Quarter: 2018Q2

REPORT INFORMATION
  Report Type: Spontaneous
  Country: DE (occurrence: DE)
  Receive Date: 20171114
  Receipt Date: 20180601
  Transmission Date: 20180711
  Serious: Yes (Hospitalization, Other)
  Sender: FDA-Public Use
  Company Number: DE-CONCORDIA PHARMACEUTICALS INC.-E2B_00008486

PATIENT
  Age: 55 Year
  Sex: Female

DRUGS (7)
  1. CLINDAMYCIN. [Concomitant]
     Active Substance: CLINDAMYCIN
     Indication: ANTIBIOTIC THERAPY
  2. TACROLIMUS. [Suspect]
     Active Substance: TACROLIMUS
     Dates: start: 201412
  3. TACROLIMUS. [Suspect]
     Active Substance: TACROLIMUS
     Indication: CHRONIC HEPATITIS B
     Route: 065
  4. PREDNISOLONE. [Suspect]
     Active Substance: PREDNISOLONE
     Indication: CHRONIC HEPATITIS B
     Dosage: 5 MG, QD
     Route: 065
     Dates: start: 201412
  5. TACROLIMUS. [Suspect]
     Active Substance: TACROLIMUS
     Dosage: 3.5 MG, BID
     Route: 065
     Dates: start: 201412
  6. MOXIFLOXACIN. [Concomitant]
     Active Substance: MOXIFLOXACIN
     Indication: ANTIBIOTIC THERAPY
     Dosage: 400 MG, QD
  7. TACROLIMUS. [Suspect]
     Active Substance: TACROLIMUS
     Dosage: 0.5 MG, QD
     Route: 065

REACTIONS (10)
  - Chronic hepatitis B [Unknown]
  - Product use in unapproved indication [Unknown]
  - Bursitis infective [Recovered/Resolved]
  - Fungal infection [Recovered/Resolved]
  - Cytomegalovirus infection [Recovered/Resolved]
  - Joint abscess [Recovered/Resolved]
  - Arthralgia [Recovered/Resolved]
  - Dermatophytosis [Recovered/Resolved]
  - Off label use [Unknown]
  - Bursitis [Recovered/Resolved]
